FAERS Safety Report 7497019-3 (Version None)
Quarter: 2011Q2

REPORT INFORMATION
  Report Type: 
  Country: None (occurrence: None)
  Receive Date: 20110523
  Receipt Date: 20110517
  Transmission Date: 20111010
  Serious: Yes (Other)
  Sender: FDA-Public Use
  Company Number: US-ABBOTT-11P-163-0719246-00

PATIENT
  Age: 43 Year
  Sex: Female
  Weight: 83.99 kg

DRUGS (10)
  1. CELEXA [Concomitant]
     Indication: ANXIETY
  2. HUMIRA [Suspect]
     Indication: PSORIASIS
     Dates: start: 20101231, end: 20110128
  3. WELLBUTRIN [Concomitant]
     Indication: ANXIETY
  4. COLACE [Concomitant]
     Indication: CONSTIPATION PROPHYLAXIS
  5. HUMIRA [Suspect]
     Dates: start: 20110328
  6. CELEXA [Concomitant]
     Indication: DEPRESSION
  7. WELLBUTRIN [Concomitant]
     Indication: DEPRESSION
  8. MULTI-VITAMIN [Concomitant]
     Indication: VITAMIN SUPPLEMENTATION
  9. ASCORBIC ACID [Concomitant]
     Indication: VITAMIN SUPPLEMENTATION
  10. VITAMIN D [Concomitant]
     Indication: VITAMIN SUPPLEMENTATION

REACTIONS (3)
  - PROCEDURAL PAIN [None]
  - INTERVERTEBRAL DISC PROTRUSION [None]
  - BACK PAIN [None]
